FAERS Safety Report 16863799 (Version 1)
Quarter: 2019Q3

REPORT INFORMATION
  Report Type: Spontaneous
  Country: JP (occurrence: JP)
  Receive Date: 20190927
  Receipt Date: 20190927
  Transmission Date: 20191005
  Serious: Yes (Death)
  Sender: FDA-Public Use
  Company Number: JP-MALLINCKRODT-T201906589

PATIENT
  Age: 7 Month
  Sex: Female
  Weight: 6 kg

DRUGS (1)
  1. INOFLO [Suspect]
     Active Substance: NITRIC OXIDE
     Indication: PULMONARY HYPERTENSION
     Dosage: UNK
     Route: 055
     Dates: start: 20160618

REACTIONS (2)
  - Circulatory collapse [Fatal]
  - Ileus paralytic [Fatal]

NARRATIVE: CASE EVENT DATE: 2016
